FAERS Safety Report 18900433 (Version 1)
Quarter: 2021Q1

REPORT INFORMATION
  Report Type: Spontaneous
  Country: US (occurrence: US)
  Receive Date: 20210216
  Receipt Date: 20210216
  Transmission Date: 20210420
  Serious: Yes (Hospitalization, Other)
  Sender: FDA-Public Use
  Company Number: US-INSUD PHARMA-2102US00158

PATIENT

DRUGS (1)
  1. NUVESSA [Suspect]
     Active Substance: METRONIDAZOLE
     Indication: CLOSTRIDIUM DIFFICILE COLITIS
     Dosage: UNKNOWN
     Route: 065

REACTIONS (5)
  - Paranoia [Recovering/Resolving]
  - Substance-induced psychotic disorder [Recovering/Resolving]
  - Ataxia [Recovering/Resolving]
  - Personality change [Recovering/Resolving]
  - Hallucination, visual [Recovering/Resolving]
